FAERS Safety Report 25130890 (Version 3)
Quarter: 2025Q2

REPORT INFORMATION
  Report Type: Spontaneous
  Country: CO (occurrence: CO)
  Receive Date: 20250327
  Receipt Date: 20250528
  Transmission Date: 20250717
  Serious: No
  Sender: PFIZER
  Company Number: CO-PFIZER INC-PV202500032947

PATIENT
  Age: 12 Year
  Sex: Female
  Weight: 23 kg

DRUGS (1)
  1. GENOTROPIN [Suspect]
     Active Substance: SOMATROPIN
     Indication: Short stature
     Dosage: 1.4 MG, DAILY
     Route: 058
     Dates: start: 202311, end: 20250402

REACTIONS (2)
  - Device information output issue [Recovered/Resolved]
  - Off label use [Unknown]
